FAERS Safety Report 8577667-X (Version None)
Quarter: 2012Q3

REPORT INFORMATION
  Report Type: 
  Country: None (occurrence: None)
  Receive Date: 20120807
  Receipt Date: 20120801
  Transmission Date: 20120928
  Serious: Yes (Other)
  Sender: FDA-Public Use
  Company Number: CA-ROCHE-GNE323941

PATIENT
  Sex: Male

DRUGS (5)
  1. VENTOLIN [Concomitant]
  2. FLUTICASONE PROPIONATE [Concomitant]
     Indication: PRODUCT USED FOR UNKNOWN INDICATION
  3. XOLAIR [Suspect]
     Indication: ASTHMA
     Dosage: 225 MG, Q2W
     Route: 058
     Dates: start: 20110525
  4. XOLAIR [Suspect]
     Indication: RHINITIS
  5. SINGULAIR [Concomitant]
     Indication: PRODUCT USED FOR UNKNOWN INDICATION

REACTIONS (12)
  - NASAL CONGESTION [None]
  - SLEEP DISORDER [None]
  - SINUS CONGESTION [None]
  - DYSPNOEA [None]
  - BLOOD PRESSURE INCREASED [None]
  - LOWER RESPIRATORY TRACT INFECTION [None]
  - DISCOMFORT [None]
  - COUGH [None]
  - MALAISE [None]
  - FATIGUE [None]
  - HYPERSENSITIVITY [None]
  - NASOPHARYNGITIS [None]
